APPROVED DRUG PRODUCT: SODIUM P.A.S.
Active Ingredient: AMINOSALICYLATE SODIUM
Strength: 500MG
Dosage Form/Route: TABLET;ORAL
Application: A080138 | Product #002
Applicant: LANNETT CO INC
Approved: Approved Prior to Jan 1, 1982 | RLD: No | RS: No | Type: DISCN